FAERS Safety Report 20546487 (Version 1)
Quarter: 2022Q1

REPORT INFORMATION
  Report Type: Spontaneous
  Country: US (occurrence: None)
  Receive Date: 20220302
  Receipt Date: 20220302
  Transmission Date: 20220424
  Serious: Yes (Hospitalization)
  Sender: FDA-Public Use
  Company Number: None

PATIENT
  Sex: Male

DRUGS (22)
  1. DEFERASIROX [Suspect]
     Active Substance: DEFERASIROX
     Indication: Myelodysplastic syndrome
     Dosage: FREQUENCY : DAILY;?
     Route: 048
  2. ALLOPURINOL [Concomitant]
     Active Substance: ALLOPURINOL
  3. ASPIRIN [Concomitant]
     Active Substance: ASPIRIN
  4. DILTIAZEM [Concomitant]
     Active Substance: DILTIAZEM
  5. FLONASE [Concomitant]
     Active Substance: FLUTICASONE PROPIONATE
  6. FUROSEMIDE [Concomitant]
     Active Substance: FUROSEMIDE
  7. KLOR-CON [Concomitant]
     Active Substance: POTASSIUM CHLORIDE
  8. LEVAQUIN [Concomitant]
     Active Substance: LEVOFLOXACIN
  9. MAGNESIUM CARBONATE [Concomitant]
     Active Substance: MAGNESIUM CARBONATE
  10. MELATONIN [Concomitant]
     Active Substance: MELATONIN
  11. METOPROLOL [Concomitant]
     Active Substance: METOPROLOL
  12. NEUPOGEN [Concomitant]
     Active Substance: FILGRASTIM
  13. NITROSTAT [Concomitant]
     Active Substance: NITROGLYCERIN
  14. ZOFRAN [Concomitant]
     Active Substance: ONDANSETRON HYDROCHLORIDE
  15. PANTOPRAZOLE [Concomitant]
     Active Substance: PANTOPRAZOLE
  16. POTASSIUM [Concomitant]
     Active Substance: POTASSIUM
  17. PRAVASTATIN [Concomitant]
     Active Substance: PRAVASTATIN
  18. PREGABALIN [Concomitant]
     Active Substance: PREGABALIN
  19. PROCRIT [Concomitant]
     Active Substance: ERYTHROPOIETIN
  20. REBLOZYL [Concomitant]
     Active Substance: LUSPATERCEPT-AAMT
  21. SYSTANE (HYPROMELLOSE 2910 (4000 MPA.S)) [Concomitant]
     Active Substance: HYPROMELLOSE 2910 (4000 MPA.S)
  22. VENLAFAXINE [Concomitant]
     Active Substance: VENLAFAXINE HYDROCHLORIDE

REACTIONS (3)
  - Unevaluable event [None]
  - Blood disorder [None]
  - Oxygen saturation decreased [None]
